FAERS Safety Report 8607277-7 (Version None)
Quarter: 2012Q3

REPORT INFORMATION
  Report Type: 
  Country: None (occurrence: None)
  Receive Date: 20120807
  Receipt Date: 20120725
  Transmission Date: 20120928
  Serious: Yes (Death)
  Sender: FDA-Public Use
  Company Number: AUR-APL-2012-03146

PATIENT
  Age: 67 Year
  Sex: Male
  Weight: 90 kg

DRUGS (4)
  1. HYDROCHLOROTHIAZIDE [Concomitant]
  2. SIMVASTATIN [Concomitant]
  3. ASPIRIN [Concomitant]
  4. RAMIPRIL [Suspect]
     Indication: HYPERTENSION
     Dosage: DAILY (5 MG),ORAL
     Route: 048
     Dates: start: 20091201, end: 20111201

REACTIONS (2)
  - ANGIOEDEMA [None]
  - HYPOXIA [None]
